FAERS Safety Report 17020629 (Version 1)
Quarter: 2019Q4

REPORT INFORMATION
  Report Type: Spontaneous
  Country: US (occurrence: US)
  Receive Date: 20191007
  Receipt Date: 20191007
  Transmission Date: 20200122
  Serious: No
  Sender: FDA-Public Use
  Company Number: None

PATIENT
  Sex: Female

DRUGS (3)
  1. CEFEPIME 2 GM APOTEX [Suspect]
     Active Substance: CEFEPIME HYDROCHLORIDE
     Indication: ARTHRITIS BACTERIAL
     Route: 042
     Dates: start: 20190918
  2. MICAFUNGIN. [Concomitant]
     Active Substance: MICAFUNGIN SODIUM
  3. DAPTOMYCIN. [Concomitant]
     Active Substance: DAPTOMYCIN

REACTIONS (7)
  - Dyspnoea [None]
  - Pyrexia [None]
  - Infusion related reaction [None]
  - Asthenia [None]
  - Tremor [None]
  - Therapy cessation [None]
  - Headache [None]
